FAERS Safety Report 19224906 (Version 1)
Quarter: 2021Q2

REPORT INFORMATION
  Report Type: Spontaneous
  Country: LT (occurrence: LT)
  Receive Date: 20210506
  Receipt Date: 20210506
  Transmission Date: 20210717
  Serious: Yes (Hospitalization, Other)
  Sender: FDA-Public Use
  Company Number: LT-TEVA-2021-LT-1907508

PATIENT
  Age: 74 Year
  Sex: Female
  Weight: 90 kg

DRUGS (1)
  1. METFORMIN [Suspect]
     Active Substance: METFORMIN HYDROCHLORIDE
     Indication: DIABETES MELLITUS
     Dosage: 3000 MILLIGRAM DAILY;
     Route: 048

REACTIONS (3)
  - Hypoglycaemia [Recovered/Resolved]
  - Metabolic acidosis [Recovered/Resolved]
  - Acute kidney injury [Recovered/Resolved]

NARRATIVE: CASE EVENT DATE: 20210406
